FAERS Safety Report 8567063 (Version 3)
Quarter: 2013Q2

REPORT INFORMATION
  Report Type: Spontaneous
  Country: US (occurrence: US)
  Receive Date: 20120517
  Receipt Date: 20130509
  Transmission Date: 20140414
  Serious: Yes (Life-Threatening, Hospitalization, Congenital Anomaly, Other)
  Sender: FDA-Public Use
  Company Number: US-PFIZER INC-2012117069

PATIENT
  Sex: Male
  Weight: 3.05 kg

DRUGS (18)
  1. ZOLOFT [Suspect]
     Indication: DEPRESSION
     Dosage: 25MG PER DAY
     Route: 064
     Dates: start: 20041012, end: 20041018
  2. ZOLOFT [Suspect]
     Indication: ANXIETY
     Dosage: 50 MG, 1X/DAY
     Route: 064
     Dates: start: 20041019, end: 20060726
  3. ZOLOFT [Suspect]
     Dosage: 50 MG, 1X/DAY
     Route: 064
     Dates: start: 20070319, end: 20110120
  4. SERTRALINE [Concomitant]
     Indication: DEPRESSION
     Dosage: 50 MG, 1X/DAY
     Route: 064
     Dates: start: 20070319, end: 20080130
  5. SERTRALINE [Concomitant]
     Indication: ANXIETY
  6. PRENATAL VITAMINS [Concomitant]
     Dosage: UNK
     Route: 064
  7. RAMIPRIL [Concomitant]
     Dosage: UNK
     Route: 064
  8. NITROFURANTOIN [Concomitant]
     Dosage: UNK
     Route: 064
  9. MONUROL [Concomitant]
     Dosage: UNK
     Route: 064
  10. HYDROCHLOROTHIAZIDE [Concomitant]
     Dosage: UNK
     Route: 064
  11. ONDANSETRON [Concomitant]
     Indication: NAUSEA
     Dosage: 8 MG, 3X/DAY
     Route: 064
     Dates: start: 20070709
  12. ONDANSETRON [Concomitant]
     Indication: VOMITING
     Dosage: 8 MG, 3X/DAY
     Route: 064
     Dates: start: 20070727
  13. ONDANSETRON [Concomitant]
     Dosage: 8 MG, 3X/DAY
     Route: 064
     Dates: start: 20070818
  14. FEXOFENADINE [Concomitant]
     Dosage: UNK
     Route: 064
  15. MUCINEX [Concomitant]
     Dosage: UNK
     Route: 064
  16. ALLEGRA [Concomitant]
     Dosage: UNK
     Route: 064
  17. LEVAQUIN [Concomitant]
     Dosage: UNK
     Route: 064
  18. BACTRIM [Concomitant]
     Dosage: UNK
     Route: 064

REACTIONS (10)
  - Maternal exposure timing unspecified [Unknown]
  - Pulmonary valve stenosis congenital [Unknown]
  - Ventricular septal defect [Unknown]
  - Ventricular hypoplasia [Unknown]
  - Dextrocardia [Unknown]
  - Congenital anomaly [Unknown]
  - Transposition of the great vessels [Unknown]
  - Neonatal respiratory distress syndrome [Recovered/Resolved]
  - Sepsis neonatal [Recovered/Resolved]
  - Atrioventricular block second degree [Unknown]
